FAERS Safety Report 5844964-8 (Version None)
Quarter: 2008Q3

REPORT INFORMATION
  Report Type: 
  Country: None (occurrence: None)
  Receive Date: 20080813
  Receipt Date: 20080813
  Transmission Date: 20090109
  Serious: Yes (Life-Threatening, Hospitalization)
  Sender: FDA-Public Use
  Company Number: None

PATIENT
  Age: 69 Year
  Sex: Male
  Weight: 57.8 kg

DRUGS (1)
  1. SORAFENIB [Suspect]
     Indication: RENAL CELL CARCINOMA
     Dosage: 400 MG BID PO
     Route: 048
     Dates: start: 20080422, end: 20080509

REACTIONS (3)
  - MYELODYSPLASTIC SYNDROME [None]
  - NEUTROPENIC SEPSIS [None]
  - THROMBOCYTOPENIA [None]
